FAERS Safety Report 11763521 (Version 1)
Quarter: 2015Q4

REPORT INFORMATION
  Report Type: Spontaneous
  Country: US (occurrence: US)
  Receive Date: 20151120
  Receipt Date: 20151120
  Transmission Date: 20160304
  Serious: No
  Sender: FDA-Public Use
  Company Number: US-ELI_LILLY_AND_COMPANY-US201303008222

PATIENT
  Age: 72 Year
  Sex: Female

DRUGS (3)
  1. FORTEO [Suspect]
     Active Substance: TERIPARATIDE
     Indication: OSTEOPOROSIS
     Dosage: 20 UG, QD
     Route: 065
     Dates: start: 201202
  2. FORTEO [Suspect]
     Active Substance: TERIPARATIDE
     Dosage: 20 UG, QOD
     Route: 065
  3. FORTEO [Suspect]
     Active Substance: TERIPARATIDE
     Dosage: 20 UG, QOD
     Route: 065
     Dates: end: 201303

REACTIONS (8)
  - Medication error [Unknown]
  - Lactose intolerance [Unknown]
  - Polyp [Unknown]
  - Anxiety [Unknown]
  - Colitis [Unknown]
  - Emotional distress [Unknown]
  - Diarrhoea [Not Recovered/Not Resolved]
  - Blood calcium increased [Recovering/Resolving]

NARRATIVE: CASE EVENT DATE: 201211
